FAERS Safety Report 24265793 (Version 2)
Quarter: 2024Q3

REPORT INFORMATION
  Report Type: Spontaneous
  Country: JP (occurrence: JP)
  Receive Date: 20240830
  Receipt Date: 20240921
  Transmission Date: 20241016
  Serious: Yes (Life-Threatening, Hospitalization)
  Sender: TEVA
  Company Number: JP-TEVA-VS-3235267

PATIENT
  Age: 57 Year
  Sex: Male

DRUGS (10)
  1. DIAZEPAM [Suspect]
     Active Substance: DIAZEPAM
     Indication: Anxiety
     Route: 065
  2. ROCURONIUM [Concomitant]
     Active Substance: ROCURONIUM BROMIDE
     Indication: Product used for unknown indication
     Route: 042
  3. ETIZOLAM [Suspect]
     Active Substance: ETIZOLAM
     Indication: Anxiety
     Route: 065
  4. PROPOFOL [Concomitant]
     Active Substance: PROPOFOL
     Indication: Product used for unknown indication
     Route: 042
  5. DROPERIDOL [Concomitant]
     Active Substance: DROPERIDOL
     Indication: Product used for unknown indication
     Route: 042
  6. BROMAZEPAM [Suspect]
     Active Substance: BROMAZEPAM
     Indication: Anxiety
     Route: 065
  7. REMIFENTANIL [Suspect]
     Active Substance: REMIFENTANIL
     Indication: Anaesthesia
     Dosage: 0.2 0.25 ?G/KG/MIN
     Route: 042
  8. FLUNITRAZEPAM [Suspect]
     Active Substance: FLUNITRAZEPAM
     Indication: Anxiety
     Route: 065
  9. REMIMAZOLAM [Suspect]
     Active Substance: REMIMAZOLAM
     Indication: Anaesthesia
     Route: 042
  10. REMIMAZOLAM [Suspect]
     Active Substance: REMIMAZOLAM
     Indication: Anaesthesia
     Dosage: 1 1.2 MG/KG/H
     Route: 042

REACTIONS (2)
  - Anaesthetic complication [Unknown]
  - Drug ineffective [Unknown]
